FAERS Safety Report 8023814-8 (Version None)
Quarter: 2012Q1

REPORT INFORMATION
  Report Type: 
  Country: None (occurrence: None)
  Receive Date: 20120103
  Receipt Date: 20120103
  Transmission Date: 20120608
  Serious: Yes (Life-Threatening)
  Sender: FDA-Public Use
  Company Number: None

PATIENT
  Sex: Female

DRUGS (15)
  1. PEGASYS [Suspect]
     Indication: CHRONIC HEPATITIS
     Dosage: 180MCG 1 X WEEKLY INJECT SUBCUTANEOUSLY
     Route: 058
     Dates: start: 20111005
  2. RIBAVIRIN [Suspect]
     Indication: CHRONIC HEPATITIS
     Dosage: 1000MG DAILY 2-200 AM 3-200 PM ORALLY
     Route: 048
     Dates: start: 20111005
  3. POLYETH GL RANITIDINE [Concomitant]
  4. CELEXA [Concomitant]
  5. LORATADINE [Concomitant]
  6. OVCARBAZEPIN [Concomitant]
  7. XANAX [Concomitant]
  8. DOCUSATE [Concomitant]
  9. OMEPRAZOLE [Concomitant]
  10. PLAVIX [Concomitant]
  11. SIMVASTATIN [Concomitant]
  12. FLUTICASONE FUROATE [Concomitant]
  13. TRAMADOL HCL [Concomitant]
  14. ASPIRIN [Concomitant]
  15. DIPHENHYDRAM [Concomitant]

REACTIONS (1)
  - DEPRESSION [None]
